FAERS Safety Report 8581136-0 (Version None)
Quarter: 2012Q3

REPORT INFORMATION
  Report Type: 
  Country: None (occurrence: None)
  Receive Date: 20120809
  Receipt Date: 20120731
  Transmission Date: 20120928
  Serious: Yes (Other)
  Sender: FDA-Public Use
  Company Number: US-JNJFOC-20120800636

PATIENT

DRUGS (3)
  1. ZONISAMIDE [Suspect]
     Indication: MIGRAINE PROPHYLAXIS
     Route: 065
  2. PROPRANOLOL [Suspect]
     Indication: MIGRAINE PROPHYLAXIS
     Route: 065
  3. TOPIRAMATE [Suspect]
     Indication: MIGRAINE PROPHYLAXIS
     Route: 048

REACTIONS (2)
  - OFF LABEL USE [None]
  - COGNITIVE DISORDER [None]
